FAERS Safety Report 5421412-3 (Version None)
Quarter: 2007Q3

REPORT INFORMATION
  Report Type: 
  Country: None (occurrence: None)
  Receive Date: 20070821
  Receipt Date: 20070809
  Transmission Date: 20080115
  Serious: Yes (Hospitalization)
  Sender: FDA-Public Use
  Company Number: US-ELI_LILLY_AND_COMPANY-US200707001771

PATIENT
  Sex: Male

DRUGS (2)
  1. CYMBALTA [Suspect]
     Indication: NEURALGIA
     Dosage: UNK MG, UNK
     Dates: start: 20070626
  2. LYRICA [Concomitant]
     Indication: NEURALGIA

REACTIONS (1)
  - LIMB DISCOMFORT [None]
